FAERS Safety Report 8848611 (Version 2)
Quarter: 2012Q4

REPORT INFORMATION
  Report Type: 
  Country: US (occurrence: US)
  Receive Date: 20121019
  Receipt Date: 20121101
  Transmission Date: 20130627
  Serious: Yes (Hospitalization)
  Sender: FDA-Public Use
  Company Number: US-BRISTOL-MYERS SQUIBB COMPANY-17030933

PATIENT
  Age: 70 Year
  Sex: Female

DRUGS (3)
  1. COUMADIN [Suspect]
  2. LETAIRIS [Suspect]
     Indication: PULMONARY ARTERIAL HYPERTENSION
     Route: 048
     Dates: start: 20111028
  3. TREPROSTINIL [Suspect]
     Dosage: reg 1

REACTIONS (5)
  - Cardiac failure [Unknown]
  - Haemorrhage [Unknown]
  - Haemoglobin decreased [Unknown]
  - Erythema [Unknown]
  - Dry mouth [Unknown]
